FAERS Safety Report 13160422 (Version 3)
Quarter: 2017Q2

REPORT INFORMATION
  Report Type: Spontaneous
  Country: JP (occurrence: JP)
  Receive Date: 20170127
  Receipt Date: 20170414
  Transmission Date: 20170830
  Serious: Yes (Hospitalization, Other)
  Sender: FDA-Public Use
  Company Number: JP-AMGEN-JPNSP2017013678

PATIENT

DRUGS (6)
  1. ROMIPLATE [Suspect]
     Active Substance: ROMIPLOSTIM
     Dosage: UNK UNK, Q2WK
     Route: 058
  2. ROMIPLATE [Suspect]
     Active Substance: ROMIPLOSTIM
     Dosage: 160 MUG, SINGLE
     Route: 058
     Dates: start: 20161228, end: 20161228
  3. ROMIPLATE [Suspect]
     Active Substance: ROMIPLOSTIM
     Dosage: UNK UNK, QWK
     Route: 058
  4. ROMIPLATE [Suspect]
     Active Substance: ROMIPLOSTIM
     Dosage: 160 MUG, SINGLE
     Route: 058
     Dates: start: 20170118, end: 20170118
  5. ROMIPLATE [Suspect]
     Active Substance: ROMIPLOSTIM
     Indication: PRODUCT USED FOR UNKNOWN INDICATION
     Dosage: UNK
     Route: 058
  6. ROMIPLATE [Suspect]
     Active Substance: ROMIPLOSTIM
     Dosage: UNK, QWK
     Route: 058

REACTIONS (3)
  - Melaena [Unknown]
  - Platelet count decreased [Recovering/Resolving]
  - Haemoglobin decreased [Unknown]
